FAERS Safety Report 19074204 (Version 6)
Quarter: 2021Q2

REPORT INFORMATION
  Report Type: Report from Study
  Country: US (occurrence: US)
  Receive Date: 20210330
  Receipt Date: 20210510
  Transmission Date: 20210717
  Serious: Yes (Life-Threatening, Hospitalization)
  Sender: FDA-Public Use
  Company Number: US-PFIZER INC-2021308165

PATIENT
  Age: 39 Year
  Sex: Female
  Weight: 63.63 kg

DRUGS (12)
  1. BLINDED BNT162C2 [Suspect]
     Active Substance: PIDACMERAN
     Indication: COVID-19 IMMUNISATION
     Dosage: SINGLE DOSE
     Route: 030
     Dates: start: 20200923, end: 20200923
  2. PLACEBO [Suspect]
     Active Substance: UNSPECIFIED INGREDIENT
     Indication: COVID-19 IMMUNISATION
     Dosage: SINGLE DOSE
     Route: 030
     Dates: start: 20200923, end: 20200923
  3. ZOLOFT [Suspect]
     Active Substance: SERTRALINE HYDROCHLORIDE
     Dosage: 850 MG, ONCE
     Route: 048
     Dates: start: 20210309, end: 20210309
  4. AMRIX [Suspect]
     Active Substance: CYCLOBENZAPRINE HYDROCHLORIDE
     Indication: INSOMNIA
     Dosage: 5 MG, AS NEEDED
     Route: 048
     Dates: start: 20210111
  5. XANAX [Suspect]
     Active Substance: ALPRAZOLAM
     Indication: HOT FLUSH
     Dosage: 1 MG, AS NEEDED
     Route: 048
     Dates: start: 202103, end: 20210312
  6. AMRIX [Suspect]
     Active Substance: CYCLOBENZAPRINE HYDROCHLORIDE
     Dosage: 225 MG, ONCE
     Route: 048
     Dates: start: 20210309, end: 20210309
  7. BLINDED BNT162B2S01 [Suspect]
     Active Substance: INVESTIGATIONAL PRODUCT
     Indication: COVID-19 IMMUNISATION
     Dosage: SINGLE DOSE
     Route: 030
     Dates: start: 20200923, end: 20200923
  8. XANAX [Suspect]
     Active Substance: ALPRAZOLAM
     Dosage: 11 MG, ONCE
     Route: 048
     Dates: start: 20210309, end: 20210309
  9. BLINDED BNT162B1 [Suspect]
     Active Substance: ABDAVOMERAN
     Indication: COVID-19 IMMUNISATION
     Dosage: SINGLE DOSE
     Route: 030
     Dates: start: 20200923, end: 20200923
  10. ZOLOFT [Suspect]
     Active Substance: SERTRALINE HYDROCHLORIDE
     Indication: ANXIETY
     Dosage: 50 MG, 1X/DAY
     Route: 048
     Dates: start: 202102
  11. BNT?162A1. [Suspect]
     Active Substance: BNT-162A1
     Indication: COVID-19 IMMUNISATION
     Dosage: SINGLE DOSE
     Route: 030
     Dates: start: 20200923, end: 20200923
  12. BLINDED BNT162B2 [Suspect]
     Active Substance: TOZINAMERAN
     Indication: COVID-19 IMMUNISATION
     Dosage: SINGLE DOSE
     Route: 030
     Dates: start: 20200923, end: 20200923

REACTIONS (2)
  - Suicide attempt [Recovered/Resolved with Sequelae]
  - Overdose [Recovered/Resolved with Sequelae]

NARRATIVE: CASE EVENT DATE: 20210309
